FAERS Safety Report 6268205-5 (Version None)
Quarter: 2009Q3

REPORT INFORMATION
  Report Type: 
  Country: None (occurrence: None)
  Receive Date: 20090714
  Receipt Date: 20090714
  Transmission Date: 20100115
  Serious: No
  Sender: FDA-Public Use
  Company Number: None

PATIENT
  Sex: Male
  Weight: 95.2554 kg

DRUGS (2)
  1. NEVANAC [Suspect]
     Indication: PHOTOREFRACTIVE KERATECTOMY
     Dosage: ONE DROP 3XDAY OPHTHALMIC
     Route: 047
     Dates: start: 20080403, end: 20080408
  2. NEVANAC [Suspect]
     Indication: PROCEDURAL PAIN
     Dosage: ONE DROP 3XDAY OPHTHALMIC
     Route: 047
     Dates: start: 20080403, end: 20080408

REACTIONS (6)
  - CORNEAL OPACITY [None]
  - CORNEAL SCAR [None]
  - GLARE [None]
  - HALO VISION [None]
  - IMPAIRED DRIVING ABILITY [None]
  - ULCERATIVE KERATITIS [None]
